FAERS Safety Report 6349397-6 (Version None)
Quarter: 2009Q3

REPORT INFORMATION
  Report Type: 
  Country: None (occurrence: None)
  Receive Date: 20090911
  Receipt Date: 20090902
  Transmission Date: 20100115
  Serious: Yes (Other)
  Sender: FDA-Public Use
  Company Number: JP-PFIZER INC-2009263183

PATIENT
  Age: 72 Year

DRUGS (5)
  1. LIPITOR [Suspect]
     Indication: HYPERLIPIDAEMIA
     Dosage: 10 MG, UID, 1X/DAY
     Route: 048
     Dates: start: 20031107
  2. LIPITOR [Suspect]
     Indication: DYSLIPIDAEMIA
  3. MYSLEE [Suspect]
     Indication: INSOMNIA
     Dosage: 10 MG, UID, 1X/DAY
     Route: 048
     Dates: start: 20050901
  4. AMLODIPINE [Concomitant]
     Dosage: UNK
     Route: 048
     Dates: start: 20080711
  5. NORVASC [Concomitant]
     Dosage: UNK
     Route: 048
     Dates: start: 20040119, end: 20080711

REACTIONS (1)
  - VISION BLURRED [None]
